FAERS Safety Report 5929464-9 (Version None)
Quarter: 2008Q4

REPORT INFORMATION
  Report Type: 
  Country: None (occurrence: None)
  Receive Date: 20081024
  Receipt Date: 20081021
  Transmission Date: 20090506
  Serious: Yes (Other)
  Sender: FDA-Public Use
  Company Number: GR-JNJFOC-20081005014

PATIENT
  Age: 61 Year
  Sex: Male

DRUGS (6)
  1. ABCIXIMAB [Suspect]
     Route: 042
  2. ABCIXIMAB [Suspect]
     Indication: CORONARY ARTERY THROMBOSIS
     Route: 042
  3. RETEPLASE [Suspect]
     Indication: MYOCARDIAL INFARCTION
     Route: 042
  4. HEPARIN [Suspect]
     Indication: ANGIOPLASTY
  5. ASPIRIN [Suspect]
  6. ASPIRIN [Suspect]
     Indication: DRUG USE FOR UNKNOWN INDICATION

REACTIONS (2)
  - CARDIAC TAMPONADE [None]
  - PERICARDIAL HAEMORRHAGE [None]
